FAERS Safety Report 11243023 (Version 1)
Quarter: 2015Q3

REPORT INFORMATION
  Report Type: Spontaneous
  Country: GB (occurrence: GB)
  Receive Date: 20150707
  Receipt Date: 20150707
  Transmission Date: 20151125
  Serious: Yes (Disabling, Other)
  Sender: FDA-Public Use
  Company Number: GB-WATSON-2015-13084

PATIENT
  Age: 48 Year
  Sex: Female
  Weight: 73.2 kg

DRUGS (1)
  1. TAMOXIFEN (UNKNOWN) [Suspect]
     Active Substance: TAMOXIFEN
     Indication: NEOPLASM MALIGNANT
     Dosage: 20 MG, DAILY
     Route: 065
     Dates: start: 201106, end: 201504

REACTIONS (6)
  - Malaise [Unknown]
  - Musculoskeletal stiffness [Unknown]
  - Muscle spasms [Recovered/Resolved]
  - Neoplasm malignant [Unknown]
  - Quality of life decreased [Unknown]
  - Rash [Unknown]
